FAERS Safety Report 10149497 (Version 3)
Quarter: 2014Q3

REPORT INFORMATION
  Report Type: Spontaneous
  Country: IT (occurrence: IT)
  Receive Date: 20140502
  Receipt Date: 20140926
  Transmission Date: 20150326
  Serious: Yes (Hospitalization)
  Sender: FDA-Public Use
  Company Number: IT-PFIZER INC-2014118683

PATIENT
  Age: 83 Year
  Sex: Female

DRUGS (10)
  1. TRIATEC [Concomitant]
     Active Substance: RAMIPRIL
     Dosage: 2.5 MG, UNK
     Route: 048
     Dates: end: 20140423
  2. CARDIOASPIRIN [Concomitant]
     Active Substance: ASPIRIN
     Dosage: 100 MG, UNK
     Route: 048
     Dates: end: 20140423
  3. HALCION [Suspect]
     Active Substance: TRIAZOLAM
     Indication: HYPNOTHERAPY
     Dosage: 125 UG, DAILY
     Route: 048
     Dates: start: 20130101, end: 20140413
  4. MINIAS [Interacting]
     Active Substance: LORMETAZEPAM
     Indication: HYPNOTHERAPY
     Dosage: 10 GTT, DAILY
     Route: 048
     Dates: start: 20120203, end: 20140413
  5. FLUIFORT [Concomitant]
     Dosage: UNK
  6. AMLODIPINE [Concomitant]
     Active Substance: AMLODIPINE BESYLATE
     Dosage: 5 MG, UNK
     Route: 048
  7. OMEPRAZOLE. [Concomitant]
     Active Substance: OMEPRAZOLE
     Dosage: 20 MG, UNK
     Route: 048
     Dates: end: 20140423
  8. TIMOLOL [Concomitant]
     Active Substance: TIMOLOL
     Dosage: UNK
     Route: 057
     Dates: end: 20140423
  9. SINEMET [Interacting]
     Active Substance: CARBIDOPA\LEVODOPA
     Indication: TREMOR
     Dosage: 250 MG, DAILY
     Route: 048
     Dates: start: 20120203, end: 20140413
  10. LASIX [Concomitant]
     Active Substance: FUROSEMIDE
     Indication: DIURETIC THERAPY
     Dosage: 25 MG, UNK
     Route: 048
     Dates: end: 20140423

REACTIONS (3)
  - Coma [Recovered/Resolved]
  - Respiratory tract infection [Unknown]
  - Drug interaction [Unknown]

NARRATIVE: CASE EVENT DATE: 20140413
